FAERS Safety Report 4538864-3 (Version None)
Quarter: 2004Q4

REPORT INFORMATION
  Report Type: 
  Country: None (occurrence: None)
  Receive Date: 20041222
  Receipt Date: 20041215
  Transmission Date: 20050328
  Serious: Yes (Death, Hospitalization, Disabling, Other)
  Sender: FDA-Public Use
  Company Number: US_0411108187

PATIENT
  Age: 54 Year
  Sex: Female
  Weight: 68 kg

DRUGS (14)
  1. ALIMTA [Suspect]
     Indication: NON-SMALL CELL LUNG CANCER METASTATIC
     Dosage: 500 MG/M2 OTHER
     Dates: start: 20041013
  2. RADIATION THERAPY [Concomitant]
  3. FOLIC ACID [Concomitant]
  4. VITAMIN B-12 [Concomitant]
  5. DEXAMETHASONE [Concomitant]
  6. CLONIDINE [Concomitant]
  7. HYDRALAZINE [Concomitant]
  8. ZOLOFT [Concomitant]
  9. OSCAL (CALCIUM CARBONATE) [Concomitant]
  10. SODIUM BICARBONATE [Concomitant]
  11. ROCALTROL [Concomitant]
  12. RENAGEL [Concomitant]
  13. NORMODYNE [Concomitant]
  14. NORVASC [Concomitant]

REACTIONS (16)
  - ADRENAL INSUFFICIENCY [None]
  - AZOTAEMIA [None]
  - BLOOD PRESSURE INADEQUATELY CONTROLLED [None]
  - BRAIN OEDEMA [None]
  - CONDITION AGGRAVATED [None]
  - DIALYSIS [None]
  - GLOMERULAR VASCULAR DISORDER [None]
  - GLOMERULONEPHRITIS MEMBRANOUS [None]
  - MALIGNANT HYPERTENSION [None]
  - NAUSEA [None]
  - REFUSAL OF TREATMENT BY PATIENT [None]
  - RENAL FAILURE [None]
  - THROMBOTIC MICROANGIOPATHY [None]
  - TREATMENT NONCOMPLIANCE [None]
  - VOMITING [None]
  - VOMITING PROJECTILE [None]
